FAERS Safety Report 5902838-8 (Version None)
Quarter: 2008Q3

REPORT INFORMATION
  Report Type: 
  Country: None (occurrence: None)
  Receive Date: 20080930
  Receipt Date: 20080922
  Transmission Date: 20090109
  Serious: Yes (Other)
  Sender: FDA-Public Use
  Company Number: VE-WYE-H06079408

PATIENT
  Sex: Female

DRUGS (1)
  1. TORISEL [Suspect]
     Indication: NEOPLASM MALIGNANT
     Route: 042
     Dates: start: 20080825, end: 20080908

REACTIONS (3)
  - CHEST PAIN [None]
  - CYANOSIS [None]
  - DYSPNOEA [None]
